FAERS Safety Report 5690330-8 (Version None)
Quarter: 2008Q2

REPORT INFORMATION
  Report Type: 
  Country: None (occurrence: None)
  Receive Date: 20080401
  Receipt Date: 20020412
  Transmission Date: 20081010
  Serious: Yes (Death)
  Sender: FDA-Public Use
  Company Number: US-ROCHE-311392

PATIENT
  Age: 11 Year
  Sex: Female

DRUGS (9)
  1. VESANOID [Suspect]
     Indication: ACUTE PROMYELOCYTIC LEUKAEMIA
     Dosage: REGIMEN REPORTED AS 70MG Q 12HR.
     Route: 048
     Dates: start: 20020328
  2. FLUCONAZOLE [Concomitant]
     Route: 048
     Dates: start: 20020305
  3. TYLENOL (CAPLET) [Concomitant]
     Dosage: DOSING REGIMEN REPORTED AS 650MG PRN 4-6.
     Route: 048
  4. VANCOMYCIN [Concomitant]
     Route: 042
     Dates: start: 20020212
  5. ALLOPURINOL [Concomitant]
     Route: 048
  6. CELEBREX [Concomitant]
     Route: 048
  7. CEFTAZIDIME SODIUM [Concomitant]
     Route: 048
  8. CARAFATE [Concomitant]
     Route: 048
  9. MORPHINE SULFATE [Concomitant]
     Route: 042

REACTIONS (1)
  - DEATH [None]
